FAERS Safety Report 6602655-X (Version None)
Quarter: 2010Q1

REPORT INFORMATION
  Report Type: 
  Country: None (occurrence: None)
  Receive Date: 20100218
  Receipt Date: 20100208
  Transmission Date: 20100710
  Serious: Yes (Other)
  Sender: FDA-Public Use
  Company Number: 239005K09USA

PATIENT
  Age: 52 Year
  Sex: Female
  Weight: 82 kg

DRUGS (4)
  1. REBIF [Suspect]
     Indication: MULTIPLE SCLEROSIS
     Dosage: 44 MCG., 3 IN 1 WEEKS, SUBCUTANEOUS
     Route: 058
     Dates: start: 20090401
  2. EQUATE COMPLETE MULTIVITAMIN (MULTIVITAMIN /01229101/) [Concomitant]
  3. LEXAPRO [Concomitant]
  4. LIPITOR [Concomitant]

REACTIONS (1)
  - SQUAMOUS CELL CARCINOMA [None]
